FAERS Safety Report 7879193-X (Version None)
Quarter: 2011Q4

REPORT INFORMATION
  Report Type: 
  Country: None (occurrence: None)
  Receive Date: 20111101
  Receipt Date: 20111028
  Transmission Date: 20120403
  Serious: No
  Sender: FDA-Public Use
  Company Number: US-TEVA-307280USA

PATIENT
  Sex: Female
  Weight: 82.174 kg

DRUGS (2)
  1. LORATADINE [Concomitant]
     Indication: SEASONAL ALLERGY
     Route: 048
  2. PLAN B ONE-STEP [Suspect]
     Indication: POST COITAL CONTRACEPTION
     Dosage: 1.5 MILLIGRAM;
     Route: 048
     Dates: start: 20111022, end: 20111022

REACTIONS (1)
  - MENSTRUATION IRREGULAR [None]
